FAERS Safety Report 5382492-7 (Version None)
Quarter: 2007Q3

REPORT INFORMATION
  Report Type: 
  Country: None (occurrence: None)
  Receive Date: 20070710
  Receipt Date: 20070703
  Transmission Date: 20080115
  Serious: Yes (Disabling, Other)
  Sender: FDA-Public Use
  Company Number: US-ELI_LILLY_AND_COMPANY-US200707000766

PATIENT
  Age: 86 Year
  Sex: Female

DRUGS (2)
  1. ZYPREXA [Suspect]
     Indication: DEMENTIA
     Dosage: 5 MG, DAILY (1/D)
     Dates: start: 19990501
  2. ZYPREXA [Suspect]
     Dosage: 2.5 MG, DAILY (1/D)

REACTIONS (6)
  - DYSPHAGIA [None]
  - LETHARGY [None]
  - PARKINSONISM [None]
  - SOMNOLENCE [None]
  - TRANSIENT ISCHAEMIC ATTACK [None]
  - WHEELCHAIR USER [None]
